FAERS Safety Report 12256725 (Version 1)
Quarter: 2016Q2

REPORT INFORMATION
  Report Type: Spontaneous
  Country: US (occurrence: US)
  Receive Date: 20160412
  Receipt Date: 20160412
  Transmission Date: 20160815
  Serious: Yes (Hospitalization, Other)
  Sender: FDA-Public Use
  Company Number: US-PFIZER INC-2016206089

PATIENT
  Age: 76 Year
  Sex: Female
  Weight: 73.48 kg

DRUGS (7)
  1. TOVIAZ [Suspect]
     Active Substance: FESOTERODINE FUMARATE
     Indication: BLADDER DISORDER
     Dosage: 8 MG, CAPSULES, ONCE A DAY
  2. CELEBREX [Suspect]
     Active Substance: CELECOXIB
     Indication: ARTHRITIS
     Dosage: 200 MG, TWICE A DAY
     Dates: end: 20160325
  3. VIIBRYD [Concomitant]
     Active Substance: VILAZODONE HYDROCHLORIDE
     Indication: DEPRESSION
     Dosage: 10 MG, 1X/DAY
  4. ISOSORB MONO ER [Concomitant]
     Indication: CARDIAC DISORDER
     Dosage: 120 MG, DAILY
  5. CRESTOR [Concomitant]
     Active Substance: ROSUVASTATIN CALCIUM
     Indication: BLOOD CHOLESTEROL ABNORMAL
     Dosage: 10 MG, DAILY
  6. FENOFIBRATE. [Concomitant]
     Active Substance: FENOFIBRATE
     Indication: CARDIAC DISORDER
     Dosage: 149 MG, ONE TABLET DAILY
  7. EXCEDRIN [Concomitant]
     Active Substance: ACETAMINOPHEN\ASPIRIN\CAFFEINE
     Indication: HEADACHE
     Dosage: [ACETYLSALICYLIC ACID 250 MG]/[CAFFEINE 65MG]/[PARACETAMOL 250MG], 500 MG AS NEEDED,2 AT A TIME

REACTIONS (5)
  - Enzyme level increased [Unknown]
  - Asthenia [Unknown]
  - Chest pain [Unknown]
  - Malaise [Unknown]
  - Myocardial infarction [Unknown]

NARRATIVE: CASE EVENT DATE: 2016
